FAERS Safety Report 12461389 (Version 1)
Quarter: 2016Q2

REPORT INFORMATION
  Report Type: Spontaneous
  Country: US (occurrence: US)
  Receive Date: 20160613
  Receipt Date: 20160613
  Transmission Date: 20160815
  Serious: Yes (Other)
  Sender: FDA-Public Use
  Company Number: US-BAYER-2016-114345

PATIENT
  Age: 41 Year
  Sex: Female

DRUGS (1)
  1. MIRENA [Suspect]
     Active Substance: LEVONORGESTREL
     Indication: CONTRACEPTION
     Dosage: 20 MCG/24HR, CONT
     Route: 015
     Dates: start: 2005

REACTIONS (6)
  - Cardiac failure congestive [None]
  - Uterine perforation [None]
  - Chronic obstructive pulmonary disease [None]
  - Obesity [None]
  - Schizophrenia [None]
  - Device use issue [None]

NARRATIVE: CASE EVENT DATE: 2010
